FAERS Safety Report 5663789-X (Version None)
Quarter: 2008Q1

REPORT INFORMATION
  Report Type: 
  Country: None (occurrence: None)
  Receive Date: 20080313
  Receipt Date: 20080305
  Transmission Date: 20080703
  Serious: Yes (Other)
  Sender: FDA-Public Use
  Company Number: PHBS2008BE02803

PATIENT

DRUGS (2)
  1. ZOMETA [Suspect]
     Indication: METASTATIC BRONCHIAL CARCINOMA
     Dates: start: 20050301, end: 20071106
  2. CHEMOTHERAPEUTICS NOS [Concomitant]
     Indication: LUNG NEOPLASM MALIGNANT

REACTIONS (4)
  - BONE DISORDER [None]
  - DISEASE PROGRESSION [None]
  - OSTEONECROSIS [None]
  - TOOTH ABSCESS [None]
